FAERS Safety Report 11684237 (Version 1)
Quarter: 2015Q4

REPORT INFORMATION
  Report Type: Report from Study
  Country: AU (occurrence: AU)
  Receive Date: 20151029
  Receipt Date: 20151029
  Transmission Date: 20160304
  Serious: Yes (Other)
  Sender: FDA-Public Use
  Company Number: AU-BRISTOL-MYERS SQUIBB COMPANY-18812859

PATIENT
  Age: 28 Year
  Sex: Male

DRUGS (1)
  1. DASATINIB [Suspect]
     Active Substance: DASATINIB
     Indication: CHRONIC MYELOID LEUKAEMIA
     Dosage: 100 MG, QD
     Route: 065
     Dates: start: 20120521

REACTIONS (4)
  - Stem cell transplant [Unknown]
  - Cytopenia [Unknown]
  - Malignant neoplasm progression [Unknown]
  - Graft versus host disease [Recovered/Resolved]

NARRATIVE: CASE EVENT DATE: 20120830
